FAERS Safety Report 7356439-8 (Version None)
Quarter: 2011Q1

REPORT INFORMATION
  Report Type: 
  Country: None (occurrence: None)
  Receive Date: 20110316
  Receipt Date: 20110302
  Transmission Date: 20110831
  Serious: Yes (Other)
  Sender: FDA-Public Use
  Company Number: US-BAYER-2011-020290

PATIENT
  Sex: Female
  Weight: 70 kg

DRUGS (4)
  1. ASPIRIN [Suspect]
     Indication: ANALGESIC THERAPY
     Dosage: UNK, TID
     Route: 048
     Dates: start: 19970101
  2. ALEVE (CAPLET) [Suspect]
     Indication: ANALGESIC THERAPY
     Dosage: 1 DF, QD
     Route: 048
     Dates: start: 20010101, end: 20010101
  3. SYNTHROID [Concomitant]
     Dosage: UNK
  4. THYROID TAB [Concomitant]
     Dosage: UNK

REACTIONS (2)
  - FEELING ABNORMAL [None]
  - ANTIGLIADIN ANTIBODY POSITIVE [None]
